FAERS Safety Report 6759207-0 (Version None)
Quarter: 2010Q2

REPORT INFORMATION
  Report Type: 
  Country: None (occurrence: None)
  Receive Date: 20100607
  Receipt Date: 20100526
  Transmission Date: 20101027
  Serious: Yes (Other)
  Sender: FDA-Public Use
  Company Number: JP-PFIZER INC-2010067811

PATIENT
  Age: 39 Year
  Sex: Female

DRUGS (2)
  1. ZITHROMAC SR [Suspect]
     Dosage: 2 G, 1X/DAY
     Route: 048
     Dates: start: 20100522, end: 20100522
  2. POLARAMINE [Concomitant]
     Dosage: UNK
     Dates: start: 20100521

REACTIONS (3)
  - ABDOMINAL PAIN [None]
  - DIARRHOEA [None]
  - LOSS OF CONSCIOUSNESS [None]
